FAERS Safety Report 7095728-1 (Version None)
Quarter: 2010Q4

REPORT INFORMATION
  Report Type: 
  Country: None (occurrence: None)
  Receive Date: 20101111
  Receipt Date: 20101104
  Transmission Date: 20110411
  Serious: Yes (Hospitalization)
  Sender: FDA-Public Use
  Company Number: CA-NOVOPROD-317896

PATIENT
  Age: 54 Year
  Sex: Female
  Weight: 107.48 kg

DRUGS (5)
  1. VICTOZA [Suspect]
     Indication: TYPE 2 DIABETES MELLITUS
     Dosage: 0.6 MG, QD
     Route: 065
     Dates: start: 20101001
  2. VICTOZA [Suspect]
     Dosage: 1.2 MG, QD
     Route: 065
     Dates: start: 20101001
  3. VICTOZA [Suspect]
     Dosage: 0.6 MG, QD
     Route: 065
     Dates: start: 20101101
  4. METFORMIN HCL [Concomitant]
     Dosage: 500 MG/2 TABLETS DAILY
     Route: 065
  5. CRESTOR [Concomitant]
     Dosage: 10 MG, QD
     Route: 065

REACTIONS (3)
  - ABDOMINAL PAIN UPPER [None]
  - DIARRHOEA [None]
  - NAUSEA [None]
